FAERS Safety Report 19812860 (Version 3)
Quarter: 2021Q4

REPORT INFORMATION
  Report Type: Spontaneous
  Country: US (occurrence: US)
  Receive Date: 20210910
  Receipt Date: 20211119
  Transmission Date: 20220304
  Serious: Yes (Life-Threatening, Hospitalization, Other)
  Sender: FDA-Public Use
  Company Number: US-MLMSERVICE-20210827-3068968-1

PATIENT
  Age: 32 Year
  Sex: Male

DRUGS (6)
  1. DEXAMETHASONE [Suspect]
     Active Substance: DEXAMETHASONE
     Indication: Haemophagocytic lymphohistiocytosis
     Dosage: 28 MILLIGRAM, DAILY HIGH-DOSE
     Route: 065
  2. DEXAMETHASONE [Suspect]
     Active Substance: DEXAMETHASONE
     Dosage: 24 MILLIGRAM
     Route: 065
  3. ANAKINRA [Suspect]
     Active Substance: ANAKINRA
     Indication: Haemophagocytic lymphohistiocytosis
     Dosage: 1000.67 MILLIGRAM/MILLILITRE, DAILY
     Route: 065
  4. INSULIN NOS [Concomitant]
     Active Substance: INSULIN NOS
     Indication: Diabetes mellitus inadequate control
     Dosage: UNK
     Route: 065
  5. FLUCONAZOLE [Concomitant]
     Active Substance: FLUCONAZOLE
     Indication: Antifungal prophylaxis
     Dosage: 200 MILLIGRAM, TWO TIMES A DAY
     Route: 065
  6. ACETAMINOPHEN\ASPIRIN\CAFFEINE [Concomitant]
     Active Substance: ACETAMINOPHEN\ASPIRIN\CAFFEINE
     Indication: Product used for unknown indication
     Dosage: 1 DOSAGE FORM, DAILY
     Route: 065

REACTIONS (3)
  - Paraesthesia [Unknown]
  - Systemic mycosis [Unknown]
  - Rhinocerebral mucormycosis [Unknown]
